FAERS Safety Report 11827094 (Version 2)
Quarter: 2016Q1

REPORT INFORMATION
  Report Type: Spontaneous
  Country: US (occurrence: US)
  Receive Date: 20151211
  Receipt Date: 20160115
  Transmission Date: 20160525
  Serious: No
  Sender: FDA-Public Use
  Company Number: US-SHIRE-US201516019

PATIENT
  Age: 23 Year
  Sex: Female
  Weight: 65.76 kg

DRUGS (6)
  1. CITALOPRAM [Concomitant]
     Active Substance: CITALOPRAM HYDROBROMIDE
     Indication: PRODUCT USED FOR UNKNOWN INDICATION
     Dosage: 10 MG (1/2 OF A 20 MG), 1X/DAY:QD
     Route: 048
  2. ALPRAZOLAM. [Concomitant]
     Active Substance: ALPRAZOLAM
     Indication: PRODUCT USED FOR UNKNOWN INDICATION
     Dosage: 12.5 MG (1/2 OF A 25 MG), AS REQ^D (2X/DAILY)
     Route: 048
  3. TEMAZEPAM. [Concomitant]
     Active Substance: TEMAZEPAM
     Indication: SLEEP TERROR
     Dosage: UNK, UNKNOWN
     Route: 048
  4. BUPROPION. [Concomitant]
     Active Substance: BUPROPION
     Indication: PRODUCT USED FOR UNKNOWN INDICATION
     Dosage: 300 MG, 1X/DAY:QD (BEFORE NOON)
     Route: 048
     Dates: start: 2010
  5. VYVANSE [Suspect]
     Active Substance: LISDEXAMFETAMINE DIMESYLATE
     Indication: PRODUCT USED FOR UNKNOWN INDICATION
     Dosage: 50 MG, 1X/DAY:QD
     Route: 048
     Dates: start: 2010
  6. ABILIFY [Concomitant]
     Active Substance: ARIPIPRAZOLE
     Indication: PRODUCT USED FOR UNKNOWN INDICATION
     Dosage: 5 MG (1/2 OF A 10 MG), 1X/DAY:QD
     Route: 048

REACTIONS (7)
  - Disturbance in attention [Unknown]
  - Fatigue [Not Recovered/Not Resolved]
  - Product quality issue [Unknown]
  - Inappropriate schedule of drug administration [Not Recovered/Not Resolved]
  - Asthenia [Recovered/Resolved]
  - Drug ineffective [Not Recovered/Not Resolved]
  - Apathy [Unknown]

NARRATIVE: CASE EVENT DATE: 2013
